FAERS Safety Report 6429309-7 (Version None)
Quarter: 2009Q4

REPORT INFORMATION
  Report Type: 
  Country: None (occurrence: None)
  Receive Date: 20091105
  Receipt Date: 20091021
  Transmission Date: 20100525
  Serious: Yes (Other)
  Sender: FDA-Public Use
  Company Number: IE-GENENTECH-293586

PATIENT
  Sex: Female
  Weight: 84 kg

DRUGS (10)
  1. XOLAIR [Suspect]
     Indication: ASTHMA
     Dosage: 375 MG, Q2W
     Route: 058
     Dates: start: 20090623
  2. ZOTON [Concomitant]
     Indication: DRUG USE FOR UNKNOWN INDICATION
  3. LEXAPRO [Concomitant]
     Indication: DRUG USE FOR UNKNOWN INDICATION
  4. NU-SEALS ASPIRIN [Concomitant]
     Indication: DRUG USE FOR UNKNOWN INDICATION
  5. VERAPAMIL [Concomitant]
     Indication: DRUG USE FOR UNKNOWN INDICATION
  6. THEOPHYLLINE [Concomitant]
     Indication: DRUG USE FOR UNKNOWN INDICATION
  7. SPIRIVA [Concomitant]
     Indication: DRUG USE FOR UNKNOWN INDICATION
  8. SERETIDE [Concomitant]
     Indication: DRUG USE FOR UNKNOWN INDICATION
  9. FLUTICASONE [Concomitant]
     Indication: DRUG USE FOR UNKNOWN INDICATION
  10. ACTIVELLA [Concomitant]
     Indication: DRUG USE FOR UNKNOWN INDICATION

REACTIONS (2)
  - CHILLS [None]
  - HEADACHE [None]
